FAERS Safety Report 21593768 (Version 1)
Quarter: 2022Q4

REPORT INFORMATION
  Report Type: Spontaneous
  Country: US (occurrence: None)
  Receive Date: 20221114
  Receipt Date: 20221114
  Transmission Date: 20230113
  Serious: No
  Sender: FDA-Public Use
  Company Number: None

PATIENT
  Age: 28 Year
  Sex: Male

DRUGS (1)
  1. CABOTEGRAVIR [Suspect]
     Active Substance: CABOTEGRAVIR
     Dosage: OTHER FREQUENCY : EVERY OTHER MONTH;?
     Route: 030
     Dates: start: 20220614

REACTIONS (1)
  - Injection site mass [None]

NARRATIVE: CASE EVENT DATE: 20220912
